FAERS Safety Report 19945238 (Version 2)
Quarter: 2021Q4

REPORT INFORMATION
  Report Type: Spontaneous
  Country: US (occurrence: US)
  Receive Date: 20211012
  Receipt Date: 20211216
  Transmission Date: 20220303
  Serious: Yes (Life-Threatening, Hospitalization)
  Sender: FDA-Public Use
  Company Number: US-ELI_LILLY_AND_COMPANY-US202110002069

PATIENT
  Sex: Female
  Weight: 87.075 kg

DRUGS (8)
  1. GLUCAGON [Suspect]
     Active Substance: GLUCAGON
     Indication: Type 2 diabetes mellitus
     Dosage: 1 MG, UNKNOWN
     Route: 058
  2. GLUCAGON [Suspect]
     Active Substance: GLUCAGON
     Indication: Type 2 diabetes mellitus
     Dosage: 1 MG, UNKNOWN
     Route: 058
  3. GLUCAGON [Suspect]
     Active Substance: GLUCAGON
     Dosage: 1 MG, UNKNOWN
     Route: 058
  4. GLUCAGON [Suspect]
     Active Substance: GLUCAGON
     Dosage: 1 MG, UNKNOWN
     Route: 058
  5. LANTUS [Concomitant]
     Active Substance: INSULIN GLARGINE
     Indication: Product used for unknown indication
  6. LASIX [Concomitant]
     Active Substance: FUROSEMIDE
     Indication: Product used for unknown indication
  7. NOVOLOG [Concomitant]
     Active Substance: INSULIN ASPART
     Indication: Product used for unknown indication
  8. VENTOLIN [Concomitant]
     Active Substance: ALBUTEROL SULFATE
     Indication: Product used for unknown indication

REACTIONS (2)
  - Respiratory arrest [Recovered/Resolved]
  - Hypoglycaemia [Recovered/Resolved]
